FAERS Safety Report 5004423-1 (Version None)
Quarter: 2006Q2

REPORT INFORMATION
  Report Type: 
  Country: None (occurrence: None)
  Receive Date: 20060516
  Receipt Date: 20060516
  Transmission Date: 20061013
  Serious: Yes (Life-Threatening, Hospitalization)
  Sender: FDA-Public Use
  Company Number: None

PATIENT
  Sex: Female
  Weight: 27.8 kg

DRUGS (3)
  1. CARBATROL [Suspect]
     Indication: PARTIAL SEIZURES
     Dosage: 300MG  BID  PO
     Route: 048
     Dates: start: 20060328, end: 20060403
  2. ALBUTEROL [Concomitant]
  3. DIASTAT [Concomitant]

REACTIONS (4)
  - GENITAL PAIN [None]
  - PYREXIA [None]
  - STEVENS-JOHNSON SYNDROME [None]
  - URINARY TRACT PAIN [None]
